FAERS Safety Report 25432435 (Version 1)
Quarter: 2025Q2

REPORT INFORMATION
  Report Type: Report from Study
  Country: CA (occurrence: CA)
  Receive Date: 20250613
  Receipt Date: 20250613
  Transmission Date: 20250717
  Serious: Yes (Other)
  Sender: TAKEDA
  Company Number: CA-TAKEDA-2025TUS053490

PATIENT
  Sex: Male

DRUGS (14)
  1. VEDOLIZUMAB [Suspect]
     Active Substance: VEDOLIZUMAB
     Indication: Colitis ulcerative
  2. VEDOLIZUMAB [Suspect]
     Active Substance: VEDOLIZUMAB
     Dosage: 300 MILLIGRAM, Q4WEEKS
     Dates: start: 20190613
  3. VEDOLIZUMAB [Suspect]
     Active Substance: VEDOLIZUMAB
  4. CORTIFOAM [Concomitant]
     Active Substance: HYDROCORTISONE ACETATE
  5. ATIVAN [Concomitant]
     Active Substance: LORAZEPAM
  6. ATORVASTATIN [Concomitant]
     Active Substance: ATORVASTATIN
  7. FERROUS SULFATE [Concomitant]
     Active Substance: FERROUS SULFATE
  8. IRBESARTAN [Concomitant]
     Active Substance: IRBESARTAN
  9. AMIODARONE [Concomitant]
     Active Substance: AMIODARONE
  10. ELIQUIS [Concomitant]
     Active Substance: APIXABAN
  11. AMLODIPINE [Concomitant]
     Active Substance: AMLODIPINE BESYLATE
  12. ALVESCO [Concomitant]
     Active Substance: CICLESONIDE
  13. EFUDEX [Concomitant]
     Active Substance: FLUOROURACIL
  14. POLYETHYLENE GLYCOL 3350 [Concomitant]
     Active Substance: POLYETHYLENE GLYCOL 3350

REACTIONS (2)
  - Hypothyroidism [Recovering/Resolving]
  - Tremor [Recovering/Resolving]
